FAERS Safety Report 16535331 (Version 2)
Quarter: 2019Q3

REPORT INFORMATION
  Report Type: Spontaneous
  Country: JP (occurrence: JP)
  Receive Date: 20190705
  Receipt Date: 20190717
  Transmission Date: 20191004
  Serious: No
  Sender: FDA-Public Use
  Company Number: JP-GLAXOSMITHKLINE-JP2019JPN118354

PATIENT
  Age: 37 Year
  Sex: Male

DRUGS (2)
  1. IMIGRAN STATDOSE [Suspect]
     Active Substance: SUMATRIPTAN
     Dosage: UNK
     Route: 058
  2. SUMATRIPTAN AUTOINJECTOR [Suspect]
     Active Substance: SUMATRIPTAN
     Dosage: UNK
     Route: 058

REACTIONS (2)
  - Device failure [Unknown]
  - Device breakage [Unknown]
